FAERS Safety Report 4406167-3 (Version None)
Quarter: 2004Q3

REPORT INFORMATION
  Report Type: 
  Country: None (occurrence: None)
  Receive Date: 20040723
  Receipt Date: 20040503
  Transmission Date: 20050211
  Serious: No
  Sender: FDA-Public Use
  Company Number: US-GLAXOSMITHKLINE-A0509238A

PATIENT
  Age: 91 Year
  Sex: Female

DRUGS (9)
  1. AVANDIA [Suspect]
     Dosage: 2MG PER DAY
     Route: 048
     Dates: start: 20040407
  2. AMARYL [Concomitant]
  3. METFORMIN HCL [Concomitant]
  4. CARDIAZEM [Concomitant]
  5. ASPIRIN [Concomitant]
  6. ZOCOR [Concomitant]
  7. COZAAR [Concomitant]
  8. VITAMIN E [Concomitant]
  9. VITAMIN B-12 [Concomitant]

REACTIONS (1)
  - JOINT STIFFNESS [None]
